FAERS Safety Report 9538954 (Version 1)
Quarter: 2013Q3

REPORT INFORMATION
  Report Type: Spontaneous
  Country: US (occurrence: US)
  Receive Date: 20130920
  Receipt Date: 20130920
  Transmission Date: 20140515
  Serious: No
  Sender: FDA-Public Use
  Company Number: US-BAYER-2013-113649

PATIENT
  Age: 63 Year
  Sex: Male
  Weight: 136 kg

DRUGS (1)
  1. ALEVE CAPLET [Suspect]
     Indication: MYALGIA
     Dosage: 1-2, BID
     Route: 048
     Dates: start: 201307

REACTIONS (1)
  - Incorrect drug administration duration [None]
